FAERS Safety Report 12518910 (Version 1)
Quarter: 2016Q2

REPORT INFORMATION
  Report Type: Report from Study
  Country: US (occurrence: US)
  Receive Date: 20160630
  Receipt Date: 20160630
  Transmission Date: 20160815
  Serious: No
  Sender: FDA-Public Use
  Company Number: US-AMGEN-USASL2016080988

PATIENT
  Age: 69 Year
  Sex: Female

DRUGS (1)
  1. ENBREL [Suspect]
     Active Substance: ETANERCEPT
     Indication: RHEUMATOID ARTHRITIS
     Dosage: UNK UNK, QWK
     Route: 065
     Dates: start: 20160609

REACTIONS (6)
  - Rash macular [Unknown]
  - Injection site pruritus [Unknown]
  - Neck pain [Unknown]
  - Injection site swelling [Unknown]
  - Flushing [Unknown]
  - Injection site erythema [Unknown]

NARRATIVE: CASE EVENT DATE: 201606
